FAERS Safety Report 16429067 (Version 2)
Quarter: 2019Q2

REPORT INFORMATION
  Report Type: Spontaneous
  Country: US (occurrence: US)
  Receive Date: 20190614
  Receipt Date: 20190625
  Transmission Date: 20190711
  Serious: No
  Sender: FDA-Public Use
  Company Number: PHEH2019US024563

PATIENT
  Sex: Male

DRUGS (3)
  1. LENVATINIB [Suspect]
     Active Substance: LENVATINIB
     Dosage: 14 MG, QD
     Route: 065
  2. AFINITOR [Suspect]
     Active Substance: EVEROLIMUS
     Indication: RENAL CANCER
     Dosage: 5 MG, QD
     Route: 048
  3. LENVATINIB [Suspect]
     Active Substance: LENVATINIB
     Indication: RENAL CANCER
     Dosage: 18 MG, QD
     Route: 048

REACTIONS (5)
  - Blood phosphorus decreased [Recovered/Resolved]
  - Diarrhoea [Unknown]
  - Faeces discoloured [Unknown]
  - Flatulence [Unknown]
  - Blood iron decreased [Recovered/Resolved]
